FAERS Safety Report 13180322 (Version 3)
Quarter: 2017Q1

REPORT INFORMATION
  Report Type: Spontaneous
  Country: JP (occurrence: JP)
  Receive Date: 20170202
  Receipt Date: 20170302
  Transmission Date: 20170428
  Serious: Yes (Death, Hospitalization, Disabling)
  Sender: FDA-Public Use
  Company Number: JP-DSJP-DSJ-2016-143425

PATIENT
  Age: 75 Year
  Sex: Male
  Weight: 68 kg

DRUGS (8)
  1. LIXIANA TABLETS 60MG [Suspect]
     Active Substance: EDOXABAN TOSILATE MONOHYDRATE
     Indication: ATRIAL FIBRILLATION
     Dosage: 60 MG, QD
     Route: 048
     Dates: start: 20161118, end: 20161225
  2. PIPERACILLIN                       /00502402/ [Concomitant]
     Indication: CHOLECYSTITIS
     Dosage: 2 G, BID
     Route: 042
     Dates: start: 20161124, end: 20161202
  3. CILNIDIPINE [Concomitant]
     Active Substance: CILNIDIPINE
     Indication: HYPERTENSION
     Dosage: 10 MG, BID
     Route: 048
     Dates: start: 20161208
  4. COSPANON [Concomitant]
     Active Substance: FLOPROPIONE
     Indication: CHOLECYSTITIS
     Dosage: 80 MG, TID
     Route: 048
     Dates: start: 20161209
  5. MIDAZOLAM [Concomitant]
     Active Substance: MIDAZOLAM HYDROCHLORIDE
     Dosage: 10 MG, QD
     Route: 042
     Dates: start: 20161219
  6. HORIZON [Concomitant]
     Active Substance: DIAZEPAM
     Dosage: 10 MG, QD
     Route: 030
     Dates: start: 20161219
  7. TAKECAB [Concomitant]
     Active Substance: VONOPRAZAN FUMURATE
     Dosage: 10 MG, QD
     Route: 048
     Dates: start: 20161118
  8. URSODEOXYCHOLIC ACID [Concomitant]
     Active Substance: URSODIOL
     Indication: CHOLECYSTITIS
     Dosage: 200 MG, TID
     Route: 048
     Dates: start: 20161209

REACTIONS (5)
  - Renal impairment [Not Recovered/Not Resolved]
  - Pneumonia aspiration [Fatal]
  - Melaena [Recovering/Resolving]
  - Cholecystitis [Not Recovered/Not Resolved]
  - International normalised ratio increased [Unknown]

NARRATIVE: CASE EVENT DATE: 20161124
